FAERS Safety Report 17816494 (Version 5)
Quarter: 2020Q3

REPORT INFORMATION
  Report Type: Spontaneous
  Country: US (occurrence: US)
  Receive Date: 20200522
  Receipt Date: 20200929
  Transmission Date: 20201102
  Serious: No
  Sender: FDA-Public Use
  Company Number: US-PFIZER INC-2020202326

PATIENT
  Age: 77 Year
  Sex: Female

DRUGS (1)
  1. XELJANZ XR [Suspect]
     Active Substance: TOFACITINIB CITRATE
     Indication: RHEUMATOID ARTHRITIS
     Dosage: 11 MG DAILY
     Route: 048
     Dates: start: 201909

REACTIONS (6)
  - Weight decreased [Unknown]
  - Depressed mood [Unknown]
  - Product dose omission issue [Unknown]
  - Seasonal allergy [Recovering/Resolving]
  - Fatigue [Unknown]
  - Sensitivity to weather change [Unknown]

NARRATIVE: CASE EVENT DATE: 2020
